FAERS Safety Report 4268633-3 (Version None)
Quarter: 2004Q1

REPORT INFORMATION
  Report Type: 
  Country: None (occurrence: None)
  Receive Date: 20040108
  Receipt Date: 20031224
  Transmission Date: 20041129
  Serious: Yes (Hospitalization)
  Sender: FDA-Public Use
  Company Number: 200323074GDDC

PATIENT
  Age: 74 Year
  Sex: Male

DRUGS (1)
  1. FUROSEMIDE [Suspect]
     Dosage: 40 MG/DAY
     Dates: end: 20031211

REACTIONS (5)
  - FALL [None]
  - FRACTURE [None]
  - METABOLIC ALKALOSIS [None]
  - RESPIRATORY DISORDER [None]
  - RESPIRATORY TRACT INFECTION [None]
